FAERS Safety Report 6262205-7 (Version None)
Quarter: 2009Q3

REPORT INFORMATION
  Report Type: 
  Country: None (occurrence: None)
  Receive Date: 20090708
  Receipt Date: 20090708
  Transmission Date: 20100115
  Serious: Yes (Other)
  Sender: FDA-Public Use
  Company Number: None

PATIENT
  Sex: Female
  Weight: 58.0604 kg

DRUGS (1)
  1. ZOLPIDEM TARTRATE [Suspect]
     Indication: INSOMNIA
     Dosage: 10 MG QHS PO
     Route: 048
     Dates: start: 20090402

REACTIONS (4)
  - ILLUSION [None]
  - INSOMNIA [None]
  - PALPITATIONS [None]
  - THINKING ABNORMAL [None]
